FAERS Safety Report 6319973-5 (Version None)
Quarter: 2009Q3

REPORT INFORMATION
  Report Type: 
  Country: None (occurrence: None)
  Receive Date: 20090822
  Receipt Date: 20081014
  Transmission Date: 20100115
  Serious: No
  Sender: FDA-Public Use
  Company Number: US-ABBOTT-08P-163-0481598-00

PATIENT
  Sex: Male
  Weight: 107.14 kg

DRUGS (8)
  1. NIASPAN [Suspect]
     Indication: BLOOD CHOLESTEROL
     Route: 048
     Dates: start: 20080901
  2. SIMVASTATIN [Concomitant]
     Indication: BLOOD CHOLESTEROL
     Route: 048
  3. FINASTERIDE [Concomitant]
     Indication: PROSTATOMEGALY
  4. PANTOPRAZOLE SODIUM [Concomitant]
     Indication: DRUG USE FOR UNKNOWN INDICATION
  5. VIGRAN [Concomitant]
     Indication: DRUG USE FOR UNKNOWN INDICATION
  6. FISH OIL [Concomitant]
     Indication: DRUG USE FOR UNKNOWN INDICATION
  7. CAMELLIA SINENSIS [Concomitant]
     Indication: DRUG USE FOR UNKNOWN INDICATION
  8. POMEGRANATE [Concomitant]
     Indication: DRUG USE FOR UNKNOWN INDICATION

REACTIONS (4)
  - FLUSHING [None]
  - HYPOAESTHESIA ORAL [None]
  - LOW DENSITY LIPOPROTEIN INCREASED [None]
  - PRURITUS [None]
